FAERS Safety Report 8047578-7 (Version None)
Quarter: 2012Q1

REPORT INFORMATION
  Report Type: 
  Country: None (occurrence: None)
  Receive Date: 20120116
  Receipt Date: 20120112
  Transmission Date: 20120608
  Serious: Yes (Other)
  Sender: FDA-Public Use
  Company Number: US-GLAXOSMITHKLINE-A0952638A

PATIENT
  Sex: Female

DRUGS (1)
  1. VENTOLIN [Suspect]
     Indication: ASTHMA
     Route: 065

REACTIONS (5)
  - DYSPNOEA [None]
  - PRODUCT QUALITY ISSUE [None]
  - ASTHMA [None]
  - DRUG INEFFECTIVE [None]
  - PANIC REACTION [None]
